FAERS Safety Report 13272202 (Version 1)
Quarter: 2017Q1

REPORT INFORMATION
  Report Type: Spontaneous
  Country: GB (occurrence: GB)
  Receive Date: 20170227
  Receipt Date: 20170227
  Transmission Date: 20170428
  Serious: Yes (Other)
  Sender: FDA-Public Use
  Company Number: GB-GLAXOSMITHKLINE-GB2017024163

PATIENT
  Age: 73 Year
  Sex: Female

DRUGS (1)
  1. ACICLOVIR [Suspect]
     Active Substance: ACYCLOVIR
     Indication: PRODUCT USED FOR UNKNOWN INDICATION
     Dosage: UNK
     Route: 065

REACTIONS (7)
  - Eye swelling [Unknown]
  - Ocular hyperaemia [Unknown]
  - Pruritus genital [Unknown]
  - Oral herpes [Unknown]
  - Pain [Unknown]
  - Urinary tract infection [Unknown]
  - Herpes ophthalmic [Unknown]
